FAERS Safety Report 15148660 (Version 2)
Quarter: 2019Q3

REPORT INFORMATION
  Report Type: Spontaneous
  Country: FR (occurrence: FR)
  Receive Date: 20180716
  Receipt Date: 20190731
  Transmission Date: 20191004
  Serious: Yes (Hospitalization, Other)
  Sender: FDA-Public Use
  Company Number: FR-OTSUKA-2018_020180

PATIENT
  Age: 78 Year
  Sex: Female
  Weight: 74 kg

DRUGS (8)
  1. KEYTRUDA [Suspect]
     Active Substance: PEMBROLIZUMAB
     Indication: LUNG ADENOCARCINOMA
     Dosage: 2 MG/KG, UNK
     Route: 042
     Dates: start: 20180427, end: 20180427
  2. AMOXICILLINE [Suspect]
     Active Substance: AMOXICILLIN
     Indication: PRODUCT USED FOR UNKNOWN INDICATION
     Dosage: UNK
     Route: 042
     Dates: start: 20180515, end: 20180529
  3. ENOXAPARINE SODIQUE [Suspect]
     Active Substance: ENOXAPARIN SODIUM
     Indication: THROMBOSIS PROPHYLAXIS
     Dosage: 0.4 MG, QD
     Route: 058
     Dates: start: 20180514
  4. ACICLOVIR [Suspect]
     Active Substance: ACYCLOVIR
     Indication: HERPES VIRUS INFECTION
     Dosage: UNK
     Route: 042
     Dates: start: 20180515, end: 20180517
  5. TEGELINE [Suspect]
     Active Substance: HUMAN IMMUNOGLOBULIN G
     Indication: GUILLAIN-BARRE SYNDROME
     Dosage: 30 G, QD
     Route: 042
     Dates: start: 20180519, end: 20180523
  6. TOLVAPTAN [Suspect]
     Active Substance: TOLVAPTAN
     Indication: INAPPROPRIATE ANTIDIURETIC HORMONE SECRETION
     Dosage: 15 MG, QD
     Route: 048
     Dates: start: 20180511
  7. LYRICA [Suspect]
     Active Substance: PREGABALIN
     Indication: NEURALGIA
     Dosage: 450 MG, QD
     Route: 048
     Dates: start: 20180518
  8. LAROXYL [Suspect]
     Active Substance: AMITRIPTYLINE HYDROCHLORIDE
     Indication: DEPRESSION
     Dosage: UNK
     Route: 048
     Dates: start: 20180518

REACTIONS (1)
  - Haemolytic anaemia [Recovered/Resolved]

NARRATIVE: CASE EVENT DATE: 20180524
